FAERS Safety Report 8642893 (Version 2)
Quarter: 2013Q1

REPORT INFORMATION
  Report Type: Report from Study
  Country: US (occurrence: US)
  Receive Date: 20120629
  Receipt Date: 20130109
  Transmission Date: 20140127
  Serious: Yes (Hospitalization)
  Sender: FDA-Public Use
  Company Number: US-UCBSA-060324

PATIENT
  Age: 53 Year
  Sex: Female
  Weight: 95.5 kg

DRUGS (17)
  1. CERTOLIZUMAB PEGOL [Suspect]
     Indication: RHEUMATOID ARTHRITIS
  2. SIMVASTATIN [Concomitant]
     Indication: DYSLIPIDAEMIA
     Dates: start: 2003
  3. METHOTREXATE [Concomitant]
     Indication: RHEUMATOID ARTHRITIS
     Dosage: CURRENTLY 2.5MG, 6 TABLETS WEEKLY AS NECESSARY
     Route: 048
     Dates: start: 1998
  4. FOLATE [Concomitant]
     Indication: VITAMIN SUPPLEMENTATION
     Dates: start: 1998
  5. FOSOMAX [Concomitant]
     Indication: OSTEOPOROSIS
     Dates: start: 201106
  6. NAPROSYN [Concomitant]
     Indication: RHEUMATOID ARTHRITIS
     Dates: start: 201103
  7. PROAIR INHALER [Concomitant]
     Indication: ASTHMA
     Dosage: 1 PUFF
     Route: 055
     Dates: start: 2006
  8. VENTOLIN INHALER [Concomitant]
     Indication: ASTHMA
     Dosage: 1 PUFF
     Route: 055
     Dates: start: 201107
  9. VITAMIN D [Concomitant]
     Indication: OSTEOPOROSIS
     Dosage: 2000
     Dates: start: 1998
  10. CALCIUM [Concomitant]
     Indication: OSTEOPOROSIS
     Dates: start: 1998
  11. ZOLPIDEM [Concomitant]
     Indication: INSOMNIA
     Dates: start: 2011
  12. LEVOTHYROXINE [Concomitant]
     Indication: HYPOTHYROIDISM
     Dates: start: 20110916
  13. PRAMIPEXOLE [Concomitant]
     Indication: RESTLESS LEGS SYNDROME
     Dates: start: 20110916
  14. ZANTAC [Concomitant]
     Dates: start: 20111201
  15. ATENOLOL [Concomitant]
     Indication: HEART RATE INCREASED
     Dates: start: 2002
  16. ADDERALL [Concomitant]
  17. ROPINIROLE [Concomitant]
     Indication: RESTLESS LEGS SYNDROME
     Dates: start: 201106

REACTIONS (1)
  - Chest pain [Recovered/Resolved]
